FAERS Safety Report 10039661 (Version 3)
Quarter: 2014Q2

REPORT INFORMATION
  Report Type: Spontaneous
  Country: US (occurrence: US)
  Receive Date: 20140326
  Receipt Date: 20140605
  Transmission Date: 20141212
  Serious: Yes (Hospitalization, Other)
  Sender: FDA-Public Use
  Company Number: US-ASTRAZENECA-2014SE18919

PATIENT
  Age: 59 Year
  Sex: Female
  Weight: 65.5 kg

DRUGS (27)
  1. SEROQUEL [Suspect]
     Indication: MANIA
     Route: 048
     Dates: start: 20081001, end: 20130930
  2. SEROQUEL [Suspect]
     Indication: MANIA
     Dosage: 100 MG EVERY MORNING AND 200 MG AT BEDTIME
     Route: 048
     Dates: start: 20131004
  3. SEROQUEL [Suspect]
     Indication: MANIA
     Route: 048
     Dates: start: 20131004
  4. SEROQUEL [Suspect]
     Indication: MANIA
     Dosage: 300 MG IN AM AND 200 MG QHS
     Route: 048
     Dates: start: 20131126
  5. SEROQUEL [Suspect]
     Indication: MANIA
     Dosage: 100 MG IN AM AND 200 MG QHS
     Route: 048
     Dates: start: 20131209
  6. EFFEXOR XR [Suspect]
     Indication: DEPRESSION
     Route: 048
     Dates: start: 20081001, end: 20130930
  7. EFFEXOR XR [Suspect]
     Indication: DEPRESSION
     Route: 048
     Dates: start: 20131004
  8. TEGRETOL [Suspect]
     Indication: BIPOLAR DISORDER
     Route: 048
     Dates: start: 20081001, end: 20130913
  9. TEGRETOL [Suspect]
     Indication: BIPOLAR DISORDER
     Route: 048
     Dates: start: 20130913, end: 20130930
  10. TEGRETOL [Suspect]
     Indication: BIPOLAR DISORDER
     Dosage: 100 MG EVERY MORNING AND 200 MG AT BEDTIME
     Route: 048
     Dates: start: 20131004
  11. TEGRETOL [Suspect]
     Indication: BIPOLAR DISORDER
     Route: 048
  12. VARENICLINE [Suspect]
     Indication: SMOKING CESSATION THERAPY
     Route: 048
     Dates: start: 20130917, end: 20130930
  13. BUPROPION [Suspect]
     Indication: EX-TOBACCO USER
     Route: 048
     Dates: start: 20130917, end: 20130930
  14. NICOTINE [Suspect]
     Indication: SMOKING CESSATION THERAPY
     Route: 062
     Dates: start: 20130924, end: 20130930
  15. ACETAMINOPHEN W/CODEINE [Concomitant]
     Indication: PAIN
     Dosage: 300/30 MG, AS NEEDED
     Dates: start: 20130914, end: 20130916
  16. IBUPROFEN [Concomitant]
     Indication: PAIN
     Dates: start: 20081001, end: 20130930
  17. IBUPROFEN [Concomitant]
     Indication: PAIN
     Dosage: MOTRIN, 800 MG EVERY SIX HOURS
  18. LAMOTRIGINE [Concomitant]
     Dosage: 100 MG, TWICE DAILY (100 MG IN THE MORNING AND 100 MG AT NIGHT)
  19. DEPAKOTE ER [Concomitant]
     Dosage: 500 MG, EVERY MORNING, 750 MG QHS
  20. THORAZINE [Concomitant]
     Dosage: 100 MG EVERY MORNING, 200 MG QHS
  21. TRAMADOL [Concomitant]
  22. PROLIXIN [Concomitant]
     Dates: start: 20131030
  23. PROLIXIN DECANOATE [Concomitant]
     Dosage: 25 MG, IMP
     Dates: start: 20131030
  24. LAMICTAL [Concomitant]
     Dates: start: 20131030
  25. LAMICTAL [Concomitant]
     Dates: start: 20131126
  26. LAMICTAL [Concomitant]
     Dates: start: 201312
  27. PARACETAMOL [Concomitant]
     Dates: start: 20130914, end: 20130916

REACTIONS (29)
  - Pelvic fracture [Unknown]
  - Rib fracture [Not Recovered/Not Resolved]
  - Neuropsychiatric syndrome [Recovered/Resolved]
  - Aggression [Recovered/Resolved]
  - Delusional disorder, unspecified type [Unknown]
  - Toxicity to various agents [Unknown]
  - Insomnia [Unknown]
  - Fall [Unknown]
  - Osteopenia [Not Recovered/Not Resolved]
  - Neurological symptom [Recovered/Resolved]
  - Coordination abnormal [Unknown]
  - Hypoaesthesia [Unknown]
  - Balance disorder [Unknown]
  - Musculoskeletal disorder [Unknown]
  - Hemiparesis [Unknown]
  - Headache [Unknown]
  - Foot fracture [Unknown]
  - Bipolar disorder [Unknown]
  - Haemorrhage intracranial [Unknown]
  - Dizziness [Unknown]
  - Fatigue [Unknown]
  - Dysarthria [Unknown]
  - Drooling [Unknown]
  - Partial seizures [Unknown]
  - Sexual abuse [Unknown]
  - Sleep disorder [Recovering/Resolving]
  - Akathisia [Unknown]
  - Agitation [Unknown]
  - Hypomania [Unknown]
